FAERS Safety Report 21003998 (Version 1)
Quarter: 2022Q2

REPORT INFORMATION
  Report Type: Report from Study
  Country: US (occurrence: US)
  Receive Date: 20220624
  Receipt Date: 20220624
  Transmission Date: 20220721
  Serious: Yes (Death)
  Sender: FDA-Public Use
  Company Number: US-BAYER-2022A084397

PATIENT
  Age: 17 Year
  Weight: 100 kg

DRUGS (6)
  1. ASPIRIN [Interacting]
     Active Substance: ASPIRIN
     Dosage: UNK
  2. WARFARIN [Interacting]
     Active Substance: WARFARIN
  3. KCENTRA [Concomitant]
     Active Substance: COAGULATION FACTOR IX HUMAN\COAGULATION FACTOR VII HUMAN\COAGULATION FACTOR X HUMAN\PROTEIN C\PROTEI
     Dosage: , 25 UNITS/KG,UNK
  4. VITAMIN K [Concomitant]
     Active Substance: PHYTONADIONE
     Dosage: 10 MG
  5. FRESH FROZEN PLASMA [Concomitant]
     Active Substance: HUMAN PLASMA
  6. PLATELETS [Concomitant]
     Active Substance: HUMAN PLATELET, ALLOGENIC

REACTIONS (5)
  - Cerebral haemorrhage [Fatal]
  - Intraventricular haemorrhage [Fatal]
  - Nervous system disorder [Fatal]
  - Labelled drug-drug interaction medication error [Fatal]
  - Off label use [None]
